FAERS Safety Report 13119901 (Version 1)
Quarter: 2017Q1

REPORT INFORMATION
  Report Type: Spontaneous
  Country: US (occurrence: US)
  Receive Date: 20170117
  Receipt Date: 20170117
  Transmission Date: 20170428
  Serious: Yes (Hospitalization, Other)
  Sender: FDA-Public Use
  Company Number: US-SUN PHARMACEUTICAL INDUSTRIES LTD-2017US-131522

PATIENT
  Age: 25 Year
  Sex: Female

DRUGS (1)
  1. BACTRIM [Suspect]
     Active Substance: SULFAMETHOXAZOLE\TRIMETHOPRIM
     Indication: LIP INFECTION
     Dosage: UNK
     Route: 065
     Dates: start: 20160423

REACTIONS (13)
  - Connective tissue disorder [Unknown]
  - Brain oedema [Unknown]
  - Fatigue [Unknown]
  - Renal failure [Unknown]
  - Photosensitivity reaction [Not Recovered/Not Resolved]
  - Sjogren^s syndrome [Unknown]
  - Coagulopathy [Unknown]
  - Immune thrombocytopenic purpura [Unknown]
  - Pain [Not Recovered/Not Resolved]
  - Ocular hyperaemia [Unknown]
  - Pyrexia [Unknown]
  - Migraine [Not Recovered/Not Resolved]
  - Mouth ulceration [Unknown]

NARRATIVE: CASE EVENT DATE: 2016
